FAERS Safety Report 7296117-7 (Version None)
Quarter: 2011Q1

REPORT INFORMATION
  Report Type: 
  Country: None (occurrence: None)
  Receive Date: 20110211
  Receipt Date: 20110211
  Transmission Date: 20110831
  Serious: Yes (Hospitalization, Other)
  Sender: FDA-Public Use
  Company Number: None

PATIENT
  Sex: Male

DRUGS (1)
  1. KEPPRA [Suspect]
     Indication: CONVULSION
     Dosage: 2000 DAILY
     Dates: start: 20101001, end: 20110101

REACTIONS (5)
  - ILL-DEFINED DISORDER [None]
  - HEADACHE [None]
  - CONVULSION [None]
  - DIZZINESS [None]
  - SOMNOLENCE [None]
